FAERS Safety Report 6104113-8 (Version None)
Quarter: 2009Q1

REPORT INFORMATION
  Report Type: 
  Country: None (occurrence: None)
  Receive Date: 20090305
  Receipt Date: 20090224
  Transmission Date: 20090719
  Serious: Yes (Other)
  Sender: FDA-Public Use
  Company Number: PHEH2008US11236

PATIENT
  Sex: Female

DRUGS (9)
  1. ZOMETA [Suspect]
     Indication: METASTASES TO BONE
     Dosage: 4 MG, EVERY 6 WEEKS
     Dates: start: 20050414, end: 20081204
  2. DECADRON [Concomitant]
     Dosage: 10 MG, QW3
     Route: 042
     Dates: start: 20080911
  3. ANTIEMETICS [Concomitant]
  4. RADIATION THERAPY [Concomitant]
     Indication: METASTASIS
     Dosage: UNK
     Dates: start: 20060301
  5. GEMZAR [Concomitant]
     Dosage: UNK
     Dates: start: 20050201, end: 20050701
  6. NAVELBINE [Concomitant]
     Dosage: UNK
     Dates: start: 20050701, end: 20060301
  7. XELODA [Concomitant]
     Dosage: UNK
     Route: 048
     Dates: start: 20060301, end: 20061201
  8. ABRAXANE [Concomitant]
     Dosage: UNK
     Dates: start: 20070301, end: 20080301
  9. DOXIL [Concomitant]
     Dosage: UNK
     Dates: start: 20080901

REACTIONS (9)
  - LOOSE TOOTH [None]
  - METASTASES TO BONE [None]
  - OSTEONECROSIS [None]
  - PAIN IN JAW [None]
  - PULMONARY EMBOLISM [None]
  - RADIOTHERAPY TO BONE [None]
  - SINUSITIS [None]
  - TOOTH EXTRACTION [None]
  - TOOTHACHE [None]
